FAERS Safety Report 5879717-8 (Version None)
Quarter: 2008Q3

REPORT INFORMATION
  Report Type: 
  Country: None (occurrence: None)
  Receive Date: 20080911
  Receipt Date: 20080911
  Transmission Date: 20090109
  Serious: No
  Sender: FDA-Public Use
  Company Number: None

PATIENT

DRUGS (1)
  1. MORPHINE SULFATE [Suspect]
     Indication: PAIN
     Dosage: 5MG 1 TIME DOSE IV
     Route: 042
     Dates: start: 20080801, end: 20080901

REACTIONS (1)
  - URTICARIA [None]
